FAERS Safety Report 4777799-8 (Version None)
Quarter: 2005Q3

REPORT INFORMATION
  Report Type: 
  Country: None (occurrence: None)
  Receive Date: 20050925
  Receipt Date: 20050913
  Transmission Date: 20060218
  Serious: Yes (Other)
  Sender: FDA-Public Use
  Company Number: US-JNJFOC-20050405030

PATIENT
  Sex: Female
  Weight: 90.72 kg

DRUGS (8)
  1. REMICADE [Suspect]
     Dosage: 5 VIALS
     Route: 042
  2. REMICADE [Suspect]
     Route: 042
  3. REMICADE [Suspect]
     Indication: RHEUMATOID ARTHRITIS
     Route: 042
  4. PREDNISONE [Concomitant]
     Indication: RHEUMATOID ARTHRITIS
  5. METHOTREXATE [Concomitant]
     Indication: RHEUMATOID ARTHRITIS
     Dosage: TAKING FOR YEARS
  6. ADVAIR DISKUS 100/50 [Concomitant]
  7. ADVAIR DISKUS 100/50 [Concomitant]
     Dosage: TAKING FOR YEARS
  8. FOLIC ACID [Concomitant]
     Dosage: TAKING FOR YEARS

REACTIONS (3)
  - HEADACHE [None]
  - SINUS DISORDER [None]
  - TENDON RUPTURE [None]
